FAERS Safety Report 16895302 (Version 4)
Quarter: 2020Q2

REPORT INFORMATION
  Report Type: Spontaneous
  Country: FR (occurrence: FR)
  Receive Date: 20191008
  Receipt Date: 20200519
  Transmission Date: 20200713
  Serious: Yes (Hospitalization, Other)
  Sender: FDA-Public Use
  Company Number: FR-PFIZER INC-2019426571

PATIENT
  Age: 49 Year
  Sex: Female

DRUGS (1)
  1. MORPHINE SULFATE. [Suspect]
     Active Substance: MORPHINE SULFATE
     Indication: PAIN MANAGEMENT
     Dosage: 82 MG, UNK, (INTRAVENOUS MORPHINE PUMP)
     Route: 042

REACTIONS (1)
  - Secondary adrenocortical insufficiency [Recovered/Resolved]
